FAERS Safety Report 14074080 (Version 1)
Quarter: 2017Q4

REPORT INFORMATION
  Report Type: Spontaneous
  Country: US (occurrence: US)
  Receive Date: 20171010
  Receipt Date: 20171010
  Transmission Date: 20180321
  Serious: No
  Sender: FDA-Public Use
  Company Number: US-JNJFOC-20170925118

PATIENT
  Sex: Female
  Weight: 63.5 kg

DRUGS (1)
  1. TYLENOL EXTRA STRENGTH [Suspect]
     Active Substance: ACETAMINOPHEN
     Indication: CANCER PAIN
     Dosage: EVERY 6 HOURS, AS NEEDED
     Route: 048

REACTIONS (4)
  - Product packaging issue [Unknown]
  - Off label use [Unknown]
  - Product use in unapproved indication [Unknown]
  - Product storage error [Unknown]
